FAERS Safety Report 13874930 (Version 1)
Quarter: 2017Q3

REPORT INFORMATION
  Report Type: Spontaneous
  Country: US (occurrence: US)
  Receive Date: 20170816
  Receipt Date: 20170816
  Transmission Date: 20171127
  Serious: Yes (Other)
  Sender: FDA-Public Use
  Company Number: US-ROCHE-1363964

PATIENT
  Age: 83 Year
  Sex: Female

DRUGS (2)
  1. LUCENTIS [Suspect]
     Active Substance: RANIBIZUMAB
     Indication: NEOVASCULAR AGE-RELATED MACULAR DEGENERATION
     Dosage: EVERY 4 TO 6 WEEKS, 15 INJECTIONS
     Route: 050
     Dates: start: 20090304, end: 20140403
  2. CITRACAL [Concomitant]
     Active Substance: CALCIUM CITRATE

REACTIONS (2)
  - Product quality issue [Unknown]
  - Endophthalmitis [Recovering/Resolving]

NARRATIVE: CASE EVENT DATE: 20140306
